FAERS Safety Report 11568734 (Version 1)
Quarter: 2015Q3

REPORT INFORMATION
  Report Type: Spontaneous
  Country: US (occurrence: US)
  Receive Date: 20150916
  Receipt Date: 20150916
  Transmission Date: 20151125
  Serious: No
  Sender: FDA-Public Use
  Company Number: US-ELI_LILLY_AND_COMPANY-US200908005461

PATIENT
  Sex: Female

DRUGS (3)
  1. FORTEO [Suspect]
     Active Substance: TERIPARATIDE
     Dosage: UNK, UNK
     Dates: start: 20090815
  2. TYLENOL [Concomitant]
     Active Substance: ACETAMINOPHEN
  3. FORTEO [Suspect]
     Active Substance: TERIPARATIDE
     Dates: start: 200907, end: 20090814

REACTIONS (2)
  - Dyspnoea [Unknown]
  - Injection site pain [Not Recovered/Not Resolved]

NARRATIVE: CASE EVENT DATE: 200908
